FAERS Safety Report 5638091-2 (Version None)
Quarter: 2008Q1

REPORT INFORMATION
  Report Type: 
  Country: None (occurrence: None)
  Receive Date: 20080226
  Receipt Date: 20080221
  Transmission Date: 20080703
  Serious: Yes (Death)
  Sender: FDA-Public Use
  Company Number: CN-JNJFOC-20080204940

PATIENT
  Age: 99 Year
  Sex: Male

DRUGS (2)
  1. SPORANOX [Suspect]
     Indication: PULMONARY MYCOSIS
     Route: 042
  2. HEPARIN [Suspect]
     Indication: CEREBRAL THROMBOSIS
     Route: 065

REACTIONS (1)
  - SHOCK HAEMORRHAGIC [None]
